FAERS Safety Report 4770209-6 (Version None)
Quarter: 2005Q3

REPORT INFORMATION
  Report Type: 
  Country: None (occurrence: None)
  Receive Date: 20050915
  Receipt Date: 20050906
  Transmission Date: 20060218
  Serious: Yes (Other)
  Sender: FDA-Public Use
  Company Number: DE-JNJFOC-20050902316

PATIENT
  Age: 26 Year
  Sex: Male

DRUGS (1)
  1. RISPERDAL CONSTA [Suspect]
     Route: 030

REACTIONS (10)
  - AGITATION [None]
  - APATHY [None]
  - DELUSION [None]
  - DISTURBANCE IN ATTENTION [None]
  - IMPULSE-CONTROL DISORDER [None]
  - MALAISE [None]
  - MENTAL STATUS CHANGES [None]
  - MUTISM [None]
  - SCHIZOPHRENIA, DISORGANISED TYPE [None]
  - SPEECH DISORDER [None]
